FAERS Safety Report 9251470 (Version 2)
Quarter: 2013Q2

REPORT INFORMATION
  Report Type: Spontaneous
  Country: US (occurrence: US)
  Receive Date: 20130424
  Receipt Date: 20130510
  Transmission Date: 20140414
  Serious: Yes (Hospitalization, Other)
  Sender: FDA-Public Use
  Company Number: US-AMGEN-USASP2013027702

PATIENT
  Age: 87 Year
  Sex: Female
  Weight: 72.11 kg

DRUGS (1)
  1. PROLIA [Suspect]
     Indication: OSTEOPOROSIS POSTMENOPAUSAL
     Dosage: 60 MG, Q6MO
     Route: 058
     Dates: start: 20130315

REACTIONS (5)
  - Fractured sacrum [Unknown]
  - Lumbar vertebral fracture [Unknown]
  - Back pain [Unknown]
  - Hypocalcaemia [Not Recovered/Not Resolved]
  - Musculoskeletal chest pain [Unknown]
